FAERS Safety Report 5112893-3 (Version None)
Quarter: 2006Q3

REPORT INFORMATION
  Report Type: 
  Country: None (occurrence: None)
  Receive Date: 20060922
  Receipt Date: 20060914
  Transmission Date: 20061208
  Serious: Yes (Hospitalization)
  Sender: FDA-Public Use
  Company Number: US-ROCHE-463541

PATIENT
  Age: 54 Year
  Sex: Male

DRUGS (7)
  1. PEGASYS [Suspect]
     Dosage: STRENGTH REPORTED AS 180 MCG/ 0.5 ML.
     Route: 058
     Dates: start: 20060602
  2. RIBAVIRIN [Suspect]
     Route: 048
     Dates: start: 20060602
  3. LITHIUM CARBONATE [Concomitant]
     Indication: BIPOLAR DISORDER
     Route: 048
     Dates: start: 19860615
  4. NEURONTIN [Concomitant]
     Indication: BIPOLAR DISORDER
     Route: 048
     Dates: start: 20030615
  5. SEROQUEL [Concomitant]
     Indication: BIPOLAR DISORDER
     Route: 048
     Dates: start: 20050615
  6. DIOVAN HCT [Concomitant]
     Indication: HYPERTENSION
     Dosage: STRENGTH REPORTED AS 12.5/80 TAB.
     Route: 048
  7. COGENTIN [Concomitant]
     Indication: BIPOLAR DISORDER
     Route: 048

REACTIONS (6)
  - ANOREXIA [None]
  - BLOOD URINE PRESENT [None]
  - FATIGUE [None]
  - NAUSEA [None]
  - RETCHING [None]
  - VOMITING [None]
